FAERS Safety Report 17326495 (Version 2)
Quarter: 2020Q1

REPORT INFORMATION
  Report Type: Report from Study
  Country: US (occurrence: US)
  Receive Date: 20200127
  Receipt Date: 20200131
  Transmission Date: 20200409
  Serious: Yes (Death)
  Sender: FDA-Public Use
  Company Number: US-PFIZER INC-2020035828

PATIENT

DRUGS (5)
  1. FLUOROURACIL. [Suspect]
     Active Substance: FLUOROURACIL
     Indication: SQUAMOUS CELL CARCINOMA OF HEAD AND NECK
     Dosage: 1000 MG/M2, DAILY, INDUCTION CHEMOTHERAPY, AS A CONTINUOUS 24HOUR INTRAVENOUS  INFUSION
     Route: 042
  2. CISPLATIN. [Suspect]
     Active Substance: CISPLATIN
     Indication: SQUAMOUS CELL CARCINOMA OF HEAD AND NECK
     Dosage: 100 MG/M2, CYCLIC, INDUCTION CHEMOTHERAPY, ON DAY 1
     Route: 042
  3. CISPLATIN. [Suspect]
     Active Substance: CISPLATIN
     Dosage: 100 MG/M2, CYCLIC, Q 21D X2, CONCURRENT
     Route: 042
  4. DOCETAXEL. [Suspect]
     Active Substance: DOCETAXEL
     Indication: SQUAMOUS CELL CARCINOMA OF HEAD AND NECK
     Dosage: 75 MG/M2, CYCLIC, INDUCTION CHEMOTHERAPY, ON DAY 1
     Route: 042
  5. CIPROFLOXACIN. [Concomitant]
     Active Substance: CIPROFLOXACIN
     Indication: PROPHYLAXIS
     Dosage: UNK

REACTIONS (1)
  - Cardiac disorder [Fatal]
